FAERS Safety Report 10557911 (Version 1)
Quarter: 2014Q4

REPORT INFORMATION
  Report Type: Spontaneous
  Country: US (occurrence: US)
  Receive Date: 20141031
  Receipt Date: 20141031
  Transmission Date: 20150529
  Serious: No
  Sender: FDA-Public Use
  Company Number: US-009507513-1410USA016241

PATIENT

DRUGS (1)
  1. DULERA [Suspect]
     Active Substance: FORMOTEROL FUMARATE DIHYDRATE\MOMETASONE FUROATE
     Dosage: STRENGTH: 200/5 MICROGRAM, 1 STANDARD DOSE OF 13, DOSE: 2 PUFFS TWICE DAILY
     Route: 048
     Dates: start: 201408

REACTIONS (3)
  - Extra dose administered [Unknown]
  - Product quality issue [Unknown]
  - No adverse event [Unknown]
